FAERS Safety Report 6117537-X (Version None)
Quarter: 2009Q1

REPORT INFORMATION
  Report Type: 
  Country: None (occurrence: None)
  Receive Date: 20090314
  Receipt Date: 20090120
  Transmission Date: 20090719
  Serious: No
  Sender: FDA-Public Use
  Company Number: US-ABBOTT-09P-163-0499061-00

PATIENT
  Sex: Male
  Weight: 81.72 kg

DRUGS (10)
  1. HUMIRA [Suspect]
     Indication: CROHN'S DISEASE
     Route: 058
     Dates: start: 20071101
  2. SPIRIVA [Concomitant]
     Indication: ASTHMA
     Route: 048
  3. SINGULAIR [Concomitant]
     Indication: ASTHMA
     Route: 048
  4. ZANTAC [Concomitant]
     Indication: GASTROOESOPHAGEAL REFLUX DISEASE
     Route: 048
  5. BENAZEPRIL HYDROCHLORIDE [Concomitant]
     Indication: HYPERTENSION
     Route: 048
  6. HYDROCHLOROTHIAZIDE [Concomitant]
     Indication: HYPERTENSION
     Route: 048
  7. WELCHOL [Concomitant]
     Indication: BLOOD CHOLESTEROL ABNORMAL
     Route: 048
  8. WELCHOL [Concomitant]
     Indication: PROPHYLAXIS
  9. ALBUTEROL SULFATE [Concomitant]
     Indication: ASTHMA
     Route: 048
  10. ZOPINEX [Concomitant]
     Indication: ASTHMA
     Dosage: 4 PUFFS
     Route: 055

REACTIONS (3)
  - CHILLS [None]
  - NASOPHARYNGITIS [None]
  - PYREXIA [None]
